FAERS Safety Report 16149436 (Version 1)
Quarter: 2019Q2

REPORT INFORMATION
  Report Type: Spontaneous
  Country: US (occurrence: US)
  Receive Date: 20190402
  Receipt Date: 20190402
  Transmission Date: 20190711
  Serious: No
  Sender: FDA-Public Use
  Company Number: US-TEVA-2019-US-1025888

PATIENT
  Age: 69 Year
  Sex: Female

DRUGS (1)
  1. RALOXIFENE HYDROCHLORIDE TABLETS [Suspect]
     Active Substance: RALOXIFENE HYDROCHLORIDE
     Indication: OSTEOPOROSIS
     Route: 065
     Dates: start: 201901

REACTIONS (2)
  - Dry skin [Unknown]
  - Skin exfoliation [Unknown]
